FAERS Safety Report 20448964 (Version 2)
Quarter: 2022Q1

REPORT INFORMATION
  Report Type: Spontaneous
  Country: US (occurrence: US)
  Receive Date: 20220209
  Receipt Date: 20220318
  Transmission Date: 20220424
  Serious: No
  Sender: FDA-Public Use
  Company Number: US-TEVA-2022-US-2003823

PATIENT
  Age: 32 Year
  Sex: Female

DRUGS (2)
  1. PACLITAXEL [Suspect]
     Active Substance: PACLITAXEL
     Indication: Neoplasm malignant
     Dosage: 18ML (5.96MG)
     Route: 065
     Dates: start: 20220127
  2. SOLU-MEDROL [Concomitant]
     Active Substance: METHYLPREDNISOLONE SODIUM SUCCINATE
     Route: 042

REACTIONS (8)
  - Cough [Recovered/Resolved]
  - Flushing [Recovered/Resolved]
  - Dyspnoea [Recovered/Resolved]
  - Chest discomfort [Recovered/Resolved]
  - Head discomfort [Recovered/Resolved]
  - Chest discomfort [Not Recovered/Not Resolved]
  - Chest pain [Recovered/Resolved]
  - Oropharyngeal discomfort [Unknown]

NARRATIVE: CASE EVENT DATE: 20220127
